FAERS Safety Report 19007550 (Version 1)
Quarter: 2021Q1

REPORT INFORMATION
  Report Type: Spontaneous
  Country: US (occurrence: US)
  Receive Date: 20210315
  Receipt Date: 20210315
  Transmission Date: 20210420
  Serious: Yes (Death, Hospitalization)
  Sender: FDA-Public Use
  Company Number: US-PFIZER INC-2021230154

PATIENT

DRUGS (3)
  1. MEPERIDINE HCL [Suspect]
     Active Substance: MEPERIDINE HYDROCHLORIDE
     Indication: ANAESTHESIA
     Dosage: (50 TO 100MG)
     Route: 064
  2. CARBOCAINE [Suspect]
     Active Substance: MEPIVACAINE HYDROCHLORIDE
     Indication: ANAESTHESIA
     Dosage: TOTAL OF 20 TO 25ML OF 1.5 PERCENT MEPIVACAINE
     Route: 064
  3. SCOPOLAMINE HYDROBROMIDE. [Suspect]
     Active Substance: SCOPOLAMINE HYDROBROMIDE
     Indication: ANAESTHESIA
     Dosage: (0.3 TO 0.4 MG)
     Route: 064

REACTIONS (5)
  - Accidental exposure to product [Fatal]
  - Toxicity to various agents [Fatal]
  - Foetal exposure during delivery [Fatal]
  - Neonatal respiratory depression [Fatal]
  - Clonic convulsion [Unknown]
